FAERS Safety Report 8068326-0 (Version None)
Quarter: 2012Q1

REPORT INFORMATION
  Report Type: 
  Country: None (occurrence: None)
  Receive Date: 20120124
  Receipt Date: 20111012
  Transmission Date: 20120608
  Serious: No
  Sender: FDA-Public Use
  Company Number: US-AMGEN-USASP2011052787

PATIENT
  Sex: Male

DRUGS (1)
  1. XGEVA [Suspect]
     Indication: RENAL CANCER

REACTIONS (1)
  - TOOTH INFECTION [None]
